FAERS Safety Report 8304442-3 (Version None)
Quarter: 2012Q2

REPORT INFORMATION
  Report Type: 
  Country: None (occurrence: None)
  Receive Date: 20120423
  Receipt Date: 20120409
  Transmission Date: 20120825
  Serious: Yes (Other)
  Sender: FDA-Public Use
  Company Number: US-SANOFI-AVENTIS-2012SA024779

PATIENT
  Age: 77 Year
  Sex: Male
  Weight: 117.9 kg

DRUGS (4)
  1. NIFEDIPINE [Concomitant]
  2. ASCORBIC ACID [Concomitant]
  3. ELIGARD [Suspect]
     Indication: PROSTATE CANCER
     Dates: start: 20110401
  4. GABAPENTIN [Concomitant]

REACTIONS (4)
  - HYPOAESTHESIA [None]
  - MONOPLEGIA [None]
  - ABASIA [None]
  - ASTHENIA [None]
